FAERS Safety Report 5373342-3 (Version None)
Quarter: 2007Q2

REPORT INFORMATION
  Report Type: 
  Country: None (occurrence: None)
  Receive Date: 20070628
  Receipt Date: 20070622
  Transmission Date: 20071010
  Serious: Yes (Other)
  Sender: FDA-Public Use
  Company Number: DE-BRISTOL-MYERS SQUIBB COMPANY-13757505

PATIENT
  Age: 41 Year
  Sex: Male

DRUGS (3)
  1. SUSTIVA [Suspect]
     Indication: HIV INFECTION
     Dates: start: 20061009
  2. TRUVADA [Suspect]
     Indication: HIV INFECTION
     Dosage: REINITIATED FROM 17-FEB-2007 TO 01-MAR-2007
     Dates: start: 20061009
  3. PREDNISOLONE [Concomitant]

REACTIONS (4)
  - NEPHROPATHY [None]
  - RASH [None]
  - SYPHILIS TEST [None]
  - THROMBOCYTOPENIA [None]
